FAERS Safety Report 5335249-7 (Version None)
Quarter: 2007Q2

REPORT INFORMATION
  Report Type: 
  Country: None (occurrence: None)
  Receive Date: 20070525
  Receipt Date: 20070516
  Transmission Date: 20071010
  Serious: Yes (Other)
  Sender: FDA-Public Use
  Company Number: JP-PFIZER INC-2007008258

PATIENT
  Sex: Male

DRUGS (5)
  1. GABAPEN [Suspect]
     Indication: EPILEPSY
     Route: 048
     Dates: start: 20060930, end: 20070126
  2. CERCINE [Suspect]
     Indication: EPILEPSY
     Route: 048
  3. TEGRETOL [Concomitant]
     Route: 048
  4. DEPAKENE [Concomitant]
     Route: 048
  5. EBASTEL [Concomitant]
     Route: 048

REACTIONS (7)
  - ABNORMAL BEHAVIOUR [None]
  - CONVULSION [None]
  - DIZZINESS [None]
  - GAIT DISTURBANCE [None]
  - LISTLESS [None]
  - MEMORY IMPAIRMENT [None]
  - SOMNOLENCE [None]
